FAERS Safety Report 5336426-1 (Version None)
Quarter: 2007Q2

REPORT INFORMATION
  Report Type: 
  Country: None (occurrence: None)
  Receive Date: 20070529
  Receipt Date: 20070518
  Transmission Date: 20071010
  Serious: Yes (Other)
  Sender: FDA-Public Use
  Company Number: CH-JNJFOC-20070504936

PATIENT
  Age: 49 Year
  Sex: Male

DRUGS (2)
  1. REMICADE [Suspect]
     Indication: PSORIATIC ARTHROPATHY
     Dosage: 6 INFUSIONS ON UNKNOWN DATES
     Route: 042
  2. ARAVA [Concomitant]

REACTIONS (1)
  - LUPUS-LIKE SYNDROME [None]
